FAERS Safety Report 8952805 (Version 1)
Quarter: 2012Q4

REPORT INFORMATION
  Report Type: 
  Country: BR (occurrence: BR)
  Receive Date: 20121204
  Receipt Date: 20121204
  Transmission Date: 20130627
  Serious: Yes (Other)
  Sender: FDA-Public Use
  Company Number: BR-PFIZER INC-2012300490

PATIENT
  Age: 71 Year
  Sex: Male

DRUGS (6)
  1. LOSARTAN [Concomitant]
     Dosage: UNK
     Dates: start: 2009
  2. LIPITOR [Suspect]
     Indication: BLOOD CHOLESTEROL ABNORMAL
     Dosage: 40 mg (one tablet), once daily
     Route: 048
     Dates: start: 2010, end: 2011
  3. AAS [Concomitant]
     Dosage: UNK
     Dates: start: 2002
  4. SELOZOK [Concomitant]
     Dosage: UNK
     Dates: start: 2009
  5. GLIFAGE [Concomitant]
     Dosage: UNK
     Dates: start: 2009
  6. GLIMEPIRIDE [Concomitant]
     Dosage: UNK
     Dates: start: 2009

REACTIONS (4)
  - Infarction [Unknown]
  - Cardiac valve disease [Unknown]
  - Feeling abnormal [Unknown]
  - Blood cholesterol abnormal [Not Recovered/Not Resolved]
